FAERS Safety Report 11486214 (Version 1)
Quarter: 2015Q3

REPORT INFORMATION
  Report Type: Report from Study
  Country: US (occurrence: US)
  Receive Date: 20150910
  Receipt Date: 20150910
  Transmission Date: 20151125
  Serious: Yes (Other)
  Sender: FDA-Public Use
  Company Number: US-AMGEN-USASP2015092199

PATIENT
  Age: 67 Year
  Sex: Male

DRUGS (1)
  1. NPLATE [Suspect]
     Active Substance: ROMIPLOSTIM
     Indication: IMMUNE THROMBOCYTOPENIC PURPURA
     Dosage: UNK
     Route: 065

REACTIONS (7)
  - Metastases to liver [Unknown]
  - Drug ineffective [Unknown]
  - Metastases to lung [Unknown]
  - Deafness [Unknown]
  - Malignant melanoma [Unknown]
  - Platelet count abnormal [Unknown]
  - Leukaemia [Unknown]
